FAERS Safety Report 20008080 (Version 1)
Quarter: 2021Q4

REPORT INFORMATION
  Report Type: Spontaneous
  Country: CA (occurrence: CA)
  Receive Date: 20211029
  Receipt Date: 20211029
  Transmission Date: 20220303
  Serious: Yes (Other)
  Sender: FDA-Public Use
  Company Number: CA-UNITED THERAPEUTICS-UNT-2021-021020

PATIENT
  Age: 7 Year
  Sex: Male

DRUGS (1)
  1. REMODULIN [Suspect]
     Active Substance: TREPROSTINIL
     Indication: Pulmonary arterial hypertension
     Dosage: UNK , CONTINUING
     Route: 058
     Dates: start: 20180112

REACTIONS (5)
  - Syncope [Recovered/Resolved]
  - Mouth haemorrhage [Recovered/Resolved]
  - Dyspnoea [Unknown]
  - Cough [Unknown]
  - Pulmonary arterial pressure increased [Unknown]

NARRATIVE: CASE EVENT DATE: 20211015
